FAERS Safety Report 25005756 (Version 1)
Quarter: 2025Q1

REPORT INFORMATION
  Report Type: Spontaneous
  Country: AE (occurrence: AE)
  Receive Date: 20250224
  Receipt Date: 20250224
  Transmission Date: 20250409
  Serious: Yes (Other)
  Sender: PFIZER
  Company Number: AE-PFIZER INC-PV202500021623

PATIENT
  Age: 82 Year
  Sex: Female

DRUGS (3)
  1. IBRANCE [Suspect]
     Active Substance: PALBOCICLIB
     Indication: Hormone receptor positive HER2 negative breast cancer
     Dosage: 125 MG, DAILY, 21 DAYS FOLLOWED BY 7 DAYS OFF
     Route: 048
     Dates: start: 202101, end: 20250110
  2. LETROZOLE [Concomitant]
     Active Substance: LETROZOLE
     Indication: Endocrine disorder
  3. FULVESTRANT [Concomitant]
     Active Substance: FULVESTRANT
     Indication: Disease progression

REACTIONS (5)
  - Second primary malignancy [Unknown]
  - Breast cancer [Unknown]
  - Second primary malignancy [Unknown]
  - Uterine cancer [Unknown]
  - White blood cell count decreased [Unknown]
